FAERS Safety Report 5218765-8 (Version None)
Quarter: 2007Q1

REPORT INFORMATION
  Report Type: 
  Country: None (occurrence: None)
  Receive Date: 20070123
  Receipt Date: 20070111
  Transmission Date: 20070707
  Serious: Yes (Hospitalization)
  Sender: FDA-Public Use
  Company Number: HQWYE284212JAN07

PATIENT
  Age: 38 Year
  Sex: Female
  Weight: 70.37 kg

DRUGS (9)
  1. PROTONIX [Suspect]
     Indication: GASTROOESOPHAGEAL REFLUX DISEASE
     Dosage: 40 MG 1X PER 1DAY, ORAL
     Route: 048
     Dates: start: 20030101
  2. ALCOHOL (ETHANOL) [Suspect]
  3. AMBIEN [Concomitant]
  4. ALPRAZOLAM [Concomitant]
  5. COUMADIN [Concomitant]
  6. PAROXETINE [Concomitant]
  7. HYDROCODONE BITARTRATE [Concomitant]
  8. SINGULAIR [Concomitant]
  9. DILTIAZEM [Concomitant]

REACTIONS (3)
  - ABNORMAL BEHAVIOUR [None]
  - ALCOHOL POISONING [None]
  - DRUG SCREEN POSITIVE [None]
